FAERS Safety Report 5644796-X (Version None)
Quarter: 2008Q1

REPORT INFORMATION
  Report Type: 
  Country: None (occurrence: None)
  Receive Date: 20080229
  Receipt Date: 20070808
  Transmission Date: 20080703
  Serious: No
  Sender: FDA-Public Use
  Company Number: A0668941A

PATIENT
  Age: 37 Year
  Sex: Female

DRUGS (3)
  1. VALTREX [Suspect]
     Dosage: 2G SINGLE DOSE
     Route: 048
     Dates: start: 20070807, end: 20070807
  2. AMOXICILLIN [Concomitant]
  3. FLUDROCORTISONE ACETATE [Concomitant]

REACTIONS (2)
  - DIZZINESS [None]
  - HEART RATE INCREASED [None]
